FAERS Safety Report 20999478 (Version 1)
Quarter: 2022Q2

REPORT INFORMATION
  Report Type: Spontaneous
  Country: US (occurrence: US)
  Receive Date: 20220623
  Receipt Date: 20220623
  Transmission Date: 20220721
  Serious: Yes (Other)
  Sender: FDA-Public Use
  Company Number: US-ALLERGAN-2219647US

PATIENT
  Sex: Female

DRUGS (1)
  1. REFRESH CELLUVISC [Suspect]
     Active Substance: CARBOXYMETHYLCELLULOSE SODIUM
     Indication: Dry eye
     Dosage: UNK

REACTIONS (5)
  - Corneal transplant [Unknown]
  - Blindness [Unknown]
  - Multiple use of single-use product [Unknown]
  - Therapy interrupted [Unknown]
  - Dry eye [Unknown]
